FAERS Safety Report 9674635 (Version 2)
Quarter: 2014Q1

REPORT INFORMATION
  Report Type: Spontaneous
  Country: US (occurrence: US)
  Receive Date: 20131107
  Receipt Date: 20140107
  Transmission Date: 20141002
  Serious: No
  Sender: FDA-Public Use
  Company Number: US-009507513-1311USA000621

PATIENT
  Sex: Female
  Weight: 102 kg

DRUGS (1)
  1. NEXPLANON [Suspect]
     Indication: CONTRACEPTION
     Dosage: UNK
     Route: 059
     Dates: start: 201211, end: 20131101

REACTIONS (4)
  - Vaginal haemorrhage [Unknown]
  - Libido decreased [Unknown]
  - Back pain [Unknown]
  - Weight loss poor [Unknown]
